FAERS Safety Report 15605664 (Version 1)
Quarter: 2018Q4

REPORT INFORMATION
  Report Type: Spontaneous
  Country: DE (occurrence: DE)
  Receive Date: 20181112
  Receipt Date: 20181112
  Transmission Date: 20190205
  Serious: Yes (Hospitalization)
  Sender: FDA-Public Use
  Company Number: DE-ACCORD-091779

PATIENT
  Age: 71 Year
  Sex: Female

DRUGS (5)
  1. ACETYLSALICYLIC ACID [Concomitant]
     Active Substance: ASPIRIN
     Dosage: 100 MG, 0-0-1-0
  2. METHOTREXATE. [Suspect]
     Active Substance: METHOTREXATE
  3. METOPROLOL. [Concomitant]
     Active Substance: METOPROLOL
     Dosage: 47.5 MG, 0-0-1-0
  4. SALBUTAMOL [Concomitant]
     Active Substance: ALBUTEROL
     Dosage: BEDARF
  5. AMLODIPINE [Concomitant]
     Active Substance: AMLODIPINE BESYLATE
     Dosage: 5 MG, 0-0-1-0

REACTIONS (3)
  - Pericardial effusion [Unknown]
  - Arrhythmia [Unknown]
  - Tachycardia [Unknown]
